FAERS Safety Report 9309075 (Version 1)
Quarter: 2013Q2

REPORT INFORMATION
  Report Type: Spontaneous
  Country: US (occurrence: US)
  Receive Date: 20130525
  Receipt Date: 20130525
  Transmission Date: 20140414
  Serious: Yes (Other)
  Sender: FDA-Public Use
  Company Number: CHPA2013US008766

PATIENT
  Age: 83 Year
  Sex: Female

DRUGS (5)
  1. BENEFIBER W/ WHEAT DEXTRIN [Suspect]
     Indication: NUTRITIONAL SUPPLEMENTATION
     Dosage: 1 TABLESPOON, BID
     Route: 048
     Dates: end: 201305
  2. BENEFIBER W/ WHEAT DEXTRIN [Suspect]
     Indication: BOWEL MOVEMENT IRREGULARITY
  3. PROTONIX [Concomitant]
     Dosage: 2 DF, UNK
     Dates: start: 2012
  4. MIRALAX [Concomitant]
  5. PRILOSEC [Concomitant]
     Indication: GASTROOESOPHAGEAL REFLUX DISEASE
     Dosage: UNK, UNK

REACTIONS (8)
  - Haemorrhoids [Recovering/Resolving]
  - Rash papular [Not Recovered/Not Resolved]
  - Pain [Not Recovered/Not Resolved]
  - Burning sensation [Not Recovered/Not Resolved]
  - Pruritus [Not Recovered/Not Resolved]
  - Rash [Unknown]
  - Off label use [Unknown]
  - Incorrect dose administered [Unknown]
